FAERS Safety Report 6911739-8 (Version None)
Quarter: 2010Q3

REPORT INFORMATION
  Report Type: 
  Country: None (occurrence: None)
  Receive Date: 20100806
  Receipt Date: 20100720
  Transmission Date: 20110219
  Serious: No
  Sender: FDA-Public Use
  Company Number: US-BAYER-201028729NA

PATIENT
  Age: 48 Year
  Sex: Female
  Weight: 72 kg

DRUGS (2)
  1. ULTRAVIST (PHARMACY BULK) [Suspect]
     Indication: COMPUTERISED TOMOGRAM ABDOMEN
     Dosage: AS USED: 125 ML  UNIT DOSE: 500 ML
     Route: 042
     Dates: start: 20100720, end: 20100720
  2. GASTROVIST [Concomitant]
     Route: 048
     Dates: start: 20100720, end: 20100720

REACTIONS (4)
  - ERYTHEMA [None]
  - PRURITUS [None]
  - SNEEZING [None]
  - URTICARIA [None]
